FAERS Safety Report 7000653-8 (Version None)
Quarter: 2010Q3

REPORT INFORMATION
  Report Type: 
  Country: None (occurrence: None)
  Receive Date: 20100920
  Receipt Date: 20100503
  Transmission Date: 20110219
  Serious: No
  Sender: FDA-Public Use
  Company Number: US-ASTRAZENECA-2010SE19963

PATIENT
  Sex: Male

DRUGS (4)
  1. SEROQUEL [Suspect]
     Route: 048
  2. LAMICTAL [Concomitant]
  3. CLONAZEPAM [Concomitant]
  4. PEXEVA [Concomitant]

REACTIONS (2)
  - CONFUSIONAL STATE [None]
  - DISORIENTATION [None]
